FAERS Safety Report 7548863-5 (Version None)
Quarter: 2011Q2

REPORT INFORMATION
  Report Type: 
  Country: None (occurrence: None)
  Receive Date: 20110615
  Receipt Date: 20091031
  Transmission Date: 20111010
  Serious: Yes (Death, Hospitalization, Other)
  Sender: FDA-Public Use
  Company Number: US-BAYER-200938228NA

PATIENT
  Age: 50 Year
  Sex: Male
  Weight: 56 kg

DRUGS (42)
  1. TRASYLOL [Suspect]
     Dosage: 50 ML/HR (INFUSION)
     Dates: start: 20070720, end: 20070720
  2. TRASYLOL [Suspect]
     Dosage: 50 ML/HR INFUSION
     Route: 042
     Dates: start: 20070109
  3. LOPRESSOR [Concomitant]
     Dosage: 50 MG, UNK
     Route: 048
     Dates: start: 20070219
  4. POTASSIUM CHLORIDE [Concomitant]
     Dosage: 20 MEQ, UNK
     Route: 048
     Dates: start: 20070219
  5. POTASSIUM CHLORIDE [Concomitant]
     Dosage: 40 MEQ, UNK
     Route: 042
     Dates: start: 20070720
  6. CIPROFLOXACIN [Concomitant]
     Dosage: 500 MG, UNK
     Route: 048
     Dates: start: 20070403, end: 20070501
  7. PROPOXYPHENE HCL AND ACETAMINOPHEN [Concomitant]
     Dosage: 100/650 MG
     Route: 048
     Dates: start: 20070219
  8. ANCEF [Concomitant]
     Dosage: 3 G, UNK
     Route: 042
     Dates: start: 20070720
  9. MAGNESIUM SULFATE [Concomitant]
     Dosage: 4 MG, UNK
     Route: 042
     Dates: start: 20070720
  10. REGULAR INSULIN [Concomitant]
     Dosage: 7 U, UNK
     Route: 042
     Dates: start: 20070720
  11. TRIFLURIDINE [Concomitant]
     Dosage: UNK (EYES)
     Dates: start: 20070412
  12. BICARBONAT SOD [Concomitant]
     Dosage: 5 AMPULES
     Route: 042
     Dates: start: 20070720
  13. COUMADIN [Concomitant]
     Dosage: 2.5 MG, (LONG TERM)
     Route: 048
  14. PRILOSEC [Concomitant]
     Dosage: 20 MG, UNK
     Route: 048
     Dates: start: 20070321
  15. VERSED [Concomitant]
     Dosage: 9 MG, UNK
     Route: 042
     Dates: start: 20070720
  16. VASOPRESSIN [Concomitant]
     Dosage: 0.4 UNITS/HR
     Route: 042
     Dates: start: 20070720
  17. EPINEPHRINE [Concomitant]
     Dosage: 2 MG/HR
     Route: 042
     Dates: start: 20070720
  18. CALCIUM CARBONATE [Concomitant]
     Dosage: 1 G, UNK
     Route: 042
     Dates: start: 20070720
  19. FRESH FROZEN PLASMA [Concomitant]
     Dosage: 6 U, UNK
     Route: 042
     Dates: start: 20070720
  20. PLATELETS [Concomitant]
     Dosage: 10 U, UNK
     Route: 042
     Dates: start: 20070720
  21. TRASYLOL [Suspect]
     Indication: MEDICAL DEVICE REMOVAL
     Dosage: 200 ML LOADING DOSE
     Route: 040
     Dates: start: 20070720, end: 20070720
  22. ACYCLOVIR [Concomitant]
     Dosage: 400 MG, UNK
     Route: 048
     Dates: start: 20070531
  23. ACETYLSALICYLIC ACID SRT [Concomitant]
     Dosage: UNK
  24. FORANE [Concomitant]
     Dosage: UNK
     Route: 042
     Dates: start: 20070720
  25. PHENYLEPHRINE HCL [Concomitant]
     Dosage: 160 MCG
     Route: 042
     Dates: start: 20070720
  26. SOLU-MEDROL [Concomitant]
     Dosage: 500 MG, UNK
     Route: 042
     Dates: start: 20070720
  27. XANAX [Concomitant]
     Dosage: 0.25 MG, UNK
     Route: 048
     Dates: start: 20070219
  28. METHOCARBAMOL [Concomitant]
     Dosage: 750 MG, UNK
     Route: 048
     Dates: start: 20070613
  29. LASIX [Concomitant]
     Dosage: 40 MG, UNK
     Route: 042
     Dates: start: 20070720
  30. TRASYLOL [Suspect]
     Dosage: 200 ML LOADING DOSE
     Route: 042
     Dates: start: 20070109
  31. ACYCLOVIR [Concomitant]
     Dosage: 400 MG, UNK
     Route: 048
     Dates: start: 20070413
  32. PERSANTINE [Concomitant]
     Dosage: 75 MG, UNK
     Route: 048
     Dates: start: 20070219
  33. ENALAPRIL MALEATE [Concomitant]
     Dosage: 5 MG, UNK
     Route: 048
     Dates: start: 20070403
  34. SERTRALINE HYDROCHLORIDE [Concomitant]
     Dosage: 50 MG, UNK
     Route: 048
     Dates: start: 20070219
  35. TRASYLOL [Suspect]
     Indication: HEART TRANSPLANT
     Dosage: 1 ML, ONCE, INTIAL TEST DOSE
     Route: 042
     Dates: start: 20070720, end: 20070720
  36. SILDENAFIL CITRATE [Concomitant]
     Dosage: 20 MG, UNK
     Route: 048
     Dates: start: 20070219
  37. CARAFATE [Concomitant]
     Dosage: 1 GM/10 ML
     Route: 048
     Dates: start: 20070629
  38. FENTANYL [Concomitant]
     Dosage: 95 ML, UNK
     Route: 042
     Dates: start: 20070720
  39. REGULAR INSULIN [Concomitant]
     Dosage: 4 UNITS/HR
     Route: 042
     Dates: start: 20070720
  40. PAVULON [Concomitant]
     Dosage: 14 MG, UNK
     Route: 042
     Dates: start: 20070720
  41. HEPARIN [Concomitant]
     Dosage: 30000 U, UNK
     Route: 042
     Dates: start: 20070720
  42. PROTAMINE SULFATE [Concomitant]
     Dosage: 550 MG, UNK
     Route: 042
     Dates: start: 20070720

REACTIONS (6)
  - DEATH [None]
  - RENAL FAILURE [None]
  - PAIN [None]
  - RENAL INJURY [None]
  - INJURY [None]
  - UNEVALUABLE EVENT [None]
